FAERS Safety Report 18127178 (Version 1)
Quarter: 2020Q3

REPORT INFORMATION
  Report Type: Spontaneous
  Country: US (occurrence: US)
  Receive Date: 20200810
  Receipt Date: 20200810
  Transmission Date: 20201103
  Serious: Yes (Hospitalization, Other)
  Sender: FDA-Public Use
  Company Number: US-SUN PHARMACEUTICAL INDUSTRIES LTD-2020R1-254071

PATIENT
  Age: 43 Year
  Sex: Male

DRUGS (9)
  1. ZONISAMIDE. [Suspect]
     Active Substance: ZONISAMIDE
     Dosage: 500 MILLIGRAM, DAILY
     Route: 065
  2. LEVETIRACETAM. [Suspect]
     Active Substance: LEVETIRACETAM
     Indication: EPILEPSY
     Dosage: 2000 MILLIGRAM, 1DOSE/12HOUR
     Route: 065
  3. ZONISAMIDE. [Suspect]
     Active Substance: ZONISAMIDE
     Dosage: 350 MILLIGRAM, DAILY
     Route: 065
  4. VALPROIC ACID. [Suspect]
     Active Substance: VALPROIC ACID
     Dosage: 750 MILLIGRAM, TOTAL 1
     Route: 042
  5. ZONISAMIDE. [Suspect]
     Active Substance: ZONISAMIDE
     Indication: EPILEPSY
     Dosage: 50 MILLIGRAM, DAILY
     Route: 065
  6. VALPROIC ACID. [Suspect]
     Active Substance: VALPROIC ACID
     Dosage: 2000 MILLIGRAM, DAILY
     Route: 065
  7. LORAZEPAM. [Concomitant]
     Active Substance: LORAZEPAM
     Indication: STATUS EPILEPTICUS
     Route: 042
  8. ZONISAMIDE. [Suspect]
     Active Substance: ZONISAMIDE
     Dosage: 600 MILLIGRAM, DAILY
     Route: 065
  9. VALPROIC ACID. [Suspect]
     Active Substance: VALPROIC ACID
     Indication: EPILEPSY
     Dosage: 1500 MILLIGRAM, DAILY
     Route: 065

REACTIONS (5)
  - Cytotoxic oedema [Unknown]
  - Drug ineffective [Unknown]
  - Metabolic acidosis [Unknown]
  - Pneumonia [Unknown]
  - Hyperammonaemic encephalopathy [Unknown]
